FAERS Safety Report 12369547 (Version 1)
Quarter: 2016Q2

REPORT INFORMATION
  Report Type: Spontaneous
  Country: DE (occurrence: DE)
  Receive Date: 20160516
  Receipt Date: 20160516
  Transmission Date: 20160815
  Serious: Yes (Other)
  Sender: FDA-Public Use
  Company Number: PHHY2016DE066890

PATIENT
  Sex: Male

DRUGS (1)
  1. TASIGNA [Suspect]
     Active Substance: NILOTINIB
     Indication: CHRONIC MYELOID LEUKAEMIA
     Dosage: 150 MG, BID
     Route: 065
     Dates: start: 2010

REACTIONS (4)
  - Thyroid mass [Unknown]
  - Tremor [Unknown]
  - Hyperthyroidism [Unknown]
  - Depression [Unknown]

NARRATIVE: CASE EVENT DATE: 2015
